FAERS Safety Report 10498510 (Version 1)
Quarter: 2014Q4

REPORT INFORMATION
  Report Type: Spontaneous
  Country: ES (occurrence: ES)
  Receive Date: 20141006
  Receipt Date: 20141006
  Transmission Date: 20150528
  Serious: Yes (Hospitalization)
  Sender: FDA-Public Use
  Company Number: ES-TEVA-513634ISR

PATIENT
  Age: 76 Year
  Sex: Female

DRUGS (9)
  1. CAPTOPRIL. [Concomitant]
     Active Substance: CAPTOPRIL
     Dosage: 25 UNKNOWN DAILY;
     Route: 048
  2. GLUMIDA [Concomitant]
     Dosage: 5 UNKNOWN DAILY;
  3. OMEPRAZOL [Concomitant]
     Active Substance: OMEPRAZOLE
     Dosage: 40 UNKNOWN DAILY;
  4. AZILECT [Suspect]
     Active Substance: RASAGILINE MESYLATE
     Route: 048
     Dates: start: 20120607, end: 20120708
  5. DUMIROX [Interacting]
     Active Substance: FLUVOXAMINE MALEATE
     Route: 048
     Dates: start: 2006, end: 20120608
  6. JANUVIA [Concomitant]
     Active Substance: SITAGLIPTIN PHOSPHATE
  7. SINEMET [Concomitant]
     Active Substance: CARBIDOPA\LEVODOPA
     Dosage: ONE AND HALF TABLET EVERY 8 HOURS
  8. ORFIDAL [Concomitant]
     Active Substance: LORAZEPAM
  9. ADIRO [Concomitant]
     Active Substance: ASPIRIN

REACTIONS (2)
  - Confusional state [Recovered/Resolved]
  - Drug interaction [Recovered/Resolved]

NARRATIVE: CASE EVENT DATE: 201206
